FAERS Safety Report 21954800 (Version 1)
Quarter: 2023Q1

REPORT INFORMATION
  Report Type: Spontaneous
  Country: FR (occurrence: FR)
  Receive Date: 20230205
  Receipt Date: 20230205
  Transmission Date: 20230418
  Serious: Yes (Death, Hospitalization)
  Sender: FDA-Public Use
  Company Number: None

PATIENT
  Age: 63 Year
  Sex: Female
  Weight: 65 kg

DRUGS (19)
  1. RUXOLITINIB [Suspect]
     Active Substance: RUXOLITINIB
     Indication: Acute graft versus host disease
     Dosage: 20 MG, QD
     Route: 048
     Dates: start: 20211215, end: 20220111
  2. RUXOLITINIB [Suspect]
     Active Substance: RUXOLITINIB
     Dosage: 10 MG, QD
     Route: 048
     Dates: start: 20220111, end: 20220117
  3. NEORAL [Suspect]
     Active Substance: CYCLOSPORINE
     Indication: Prophylaxis against transplant rejection
     Dosage: 80 MG, Q12H
     Route: 048
  4. PREDNISONE [Suspect]
     Active Substance: PREDNISONE
     Indication: Graft versus host disease in gastrointestinal tract
     Dosage: 20 MG, QD
     Route: 048
     Dates: start: 20220117
  5. PREDNISONE [Suspect]
     Active Substance: PREDNISONE
     Dosage: 140 MG, QD
     Route: 048
     Dates: start: 20211206, end: 202112
  6. PREDNISONE [Suspect]
     Active Substance: PREDNISONE
     Dosage: 60 MG, QD
     Route: 048
     Dates: start: 20220106, end: 202201
  7. LEVOTHYROXINE SODIUM\LIOTHYRONINE SODIUM [Concomitant]
     Active Substance: LEVOTHYROXINE SODIUM\LIOTHYRONINE SODIUM
     Indication: Hypothyroidism
     Dosage: 0.75 DOSAGE FORM EVERY 2 DAYS (EN ALTERNANCE, 1 CP UN JOUR ET 3/4 DE CP LE JOUR SUIVANT)
     Route: 048
  8. LEVOTHYROXINE SODIUM\LIOTHYRONINE SODIUM [Concomitant]
     Active Substance: LEVOTHYROXINE SODIUM\LIOTHYRONINE SODIUM
     Dosage: 1 DOSAGE FORM EVERY 2 DAYS (EN ALTERNANCE, 1 CP UN JOUR ET 3/4 DE CP LE JOUR SUIVANT)
     Route: 048
  9. PENICILLIN V [Concomitant]
     Active Substance: PENICILLIN V
     Indication: Opportunistic infection prophylaxis
     Dosage: 1 MILLION INTERNATIONAL UNIT, QD
     Route: 048
  10. VALACYCLOVIR HYDROCHLORIDE [Concomitant]
     Active Substance: VALACYCLOVIR HYDROCHLORIDE
     Indication: Opportunistic infection prophylaxis
     Dosage: 500 MG, QD
     Route: 048
  11. NPLATE [Concomitant]
     Active Substance: ROMIPLOSTIM
     Indication: Transplant dysfunction
     Dosage: 1 DOSAGE FORM, QD
     Route: 058
     Dates: start: 20211108
  12. LEUCOVORIN CALCIUM [Concomitant]
     Active Substance: LEUCOVORIN CALCIUM
     Indication: Drug toxicity prophylaxis
     Dosage: 3 DOSAGE FORM, QW (LYOPHILISAT POUR SOLUTION BUVABLE)
     Route: 048
  13. PANTOPRAZOLE [Concomitant]
     Active Substance: PANTOPRAZOLE
     Indication: Gastritis prophylaxis
     Dosage: 40 MG, QD
     Route: 048
  14. BUDESONIDE [Concomitant]
     Active Substance: BUDESONIDE
     Indication: Graft versus host disease in gastrointestinal tract
     Dosage: 9 MG, QD (GRANUL?S GASTRO-R?SISTANTS)
     Route: 048
  15. NOXAFIL [Concomitant]
     Active Substance: POSACONAZOLE
     Indication: Opportunistic infection prophylaxis
     Dosage: 3 DOSAGE FORM, QD (COMPRIM? GASTRO-R?SISTANT)
     Route: 048
  16. URSODIOL [Concomitant]
     Active Substance: URSODIOL
     Indication: Product used for unknown indication
     Dosage: 4 DOSAGE FORM, QD (COMPRIM? PELLICUL?)
     Route: 048
  17. POTASSIUM CHLORIDE [Concomitant]
     Active Substance: POTASSIUM CHLORIDE
     Indication: Mineral supplementation
     Dosage: 1 DOSAGE FORM, QD
     Route: 048
  18. BACTRIM [Concomitant]
     Active Substance: SULFAMETHOXAZOLE\TRIMETHOPRIM
     Indication: Opportunistic infection prophylaxis
     Dosage: 3 DOSAGE FORM, QW (COMPRIM?)
     Route: 048
  19. ARANESP [Concomitant]
     Active Substance: DARBEPOETIN ALFA
     Indication: Anaemia
     Dosage: 1 DOSAGE FORM, QW
     Route: 058

REACTIONS (5)
  - Emphysematous cystitis [Fatal]
  - Shock haemorrhagic [Fatal]
  - Thrombocytopenia [Fatal]
  - Blood loss anaemia [Fatal]
  - Septic shock [Fatal]

NARRATIVE: CASE EVENT DATE: 20220104
